FAERS Safety Report 8600567-3 (Version None)
Quarter: 2012Q3

REPORT INFORMATION
  Report Type: 
  Country: None (occurrence: None)
  Receive Date: 20120817
  Receipt Date: 20120706
  Transmission Date: 20120928
  Serious: No
  Sender: FDA-Public Use
  Company Number: US-MYLANLABS-2012S1012547

PATIENT
  Age: 24 Year
  Sex: Male

DRUGS (3)
  1. CLORAZEPATE DIPOTASSIUM [Suspect]
     Indication: TIC
     Route: 048
  2. MULTI-VITAMIN [Concomitant]
     Indication: VITAMIN SUPPLEMENTATION
     Route: 048
  3. CLORAZEPATE DIPOTASSIUM [Suspect]
     Indication: ANXIETY
     Route: 048

REACTIONS (1)
  - DRUG SCREEN FALSE POSITIVE [None]
